FAERS Safety Report 19586493 (Version 1)
Quarter: 2021Q3

REPORT INFORMATION
  Report Type: Spontaneous
  Country: NL (occurrence: NL)
  Receive Date: 20210721
  Receipt Date: 20210721
  Transmission Date: 20211014
  Serious: Yes (Other)
  Sender: FDA-Public Use
  Company Number: NL-AUROBINDO-AUR-APL-2021-030423

PATIENT
  Age: 45 Year
  Sex: Male
  Weight: 78 kg

DRUGS (3)
  1. IBUPROFEN LIQUID CAPS SANIAS 400 MG CAPSULES, SOFT [Suspect]
     Active Substance: IBUPROFEN
     Indication: GOUT
     Dosage: 1 DOSAGE FORM, 3 TIMES A DAY ((3X A DAY. ON THE DAY OF THE CORONA VACCINATION, ONLY 1 X FOR THE VACC
     Route: 065
     Dates: start: 20210606, end: 20210612
  2. COMIRNATY [Suspect]
     Active Substance: TOZINAMERAN
     Indication: COVID-19 IMMUNISATION
     Dosage: 1 DOSAGE FORM
     Route: 065
     Dates: start: 20210612
  3. DICLOFENAC [Suspect]
     Active Substance: DICLOFENAC
     Indication: GOUT
     Dosage: 1 DOSAGE FORM, TWO TIMES A DAY (NO LONGER ON THE DAY OF CORONA VACCINATION)
     Route: 065
     Dates: start: 20210606, end: 20210612

REACTIONS (2)
  - Eye haematoma [Not Recovered/Not Resolved]
  - Ocular discomfort [Not Recovered/Not Resolved]

NARRATIVE: CASE EVENT DATE: 20210612
